FAERS Safety Report 5534238-7 (Version None)
Quarter: 2007Q4

REPORT INFORMATION
  Report Type: 
  Country: None (occurrence: None)
  Receive Date: 20071130
  Receipt Date: 20071130
  Transmission Date: 20080405
  Serious: Yes (Other)
  Sender: FDA-Public Use
  Company Number: None

PATIENT
  Sex: Female
  Weight: 58.0604 kg

DRUGS (1)
  1. HYDROXYCHLOROQUINE 200MG KANETTA [Suspect]
     Indication: CUTANEOUS LUPUS ERYTHEMATOSUS
     Dosage: 1 TABLET TWICE A DAY INJ
     Dates: start: 20050101, end: 20070601

REACTIONS (5)
  - CHILLS [None]
  - CUTANEOUS LUPUS ERYTHEMATOSUS [None]
  - DISEASE RECURRENCE [None]
  - GENITAL HERPES [None]
  - PHARMACEUTICAL PRODUCT COMPLAINT [None]
